FAERS Safety Report 10234997 (Version 1)
Quarter: 2014Q2

REPORT INFORMATION
  Report Type: Spontaneous
  Country: US (occurrence: US)
  Receive Date: 20140613
  Receipt Date: 20140613
  Transmission Date: 20141212
  Serious: No
  Sender: FDA-Public Use
  Company Number: US-009507513-1405USA009014

PATIENT
  Sex: Female

DRUGS (2)
  1. DULERA [Suspect]
     Indication: ASTHMA
     Dosage: 100/5MCG, FREQUENCY UNSPECIFIED
     Route: 055
  2. DULERA [Suspect]
     Dosage: 100/5 MCG, FREQUENCY UNSPECIFIED
     Route: 055

REACTIONS (1)
  - Muscle tightness [Recovered/Resolved]
